FAERS Safety Report 21772869 (Version 1)
Quarter: 2022Q4

REPORT INFORMATION
  Report Type: Spontaneous
  Country: US (occurrence: None)
  Receive Date: 20221220
  Receipt Date: 20221220
  Transmission Date: 20230113
  Serious: No
  Sender: FDA-Public Use
  Company Number: None

PATIENT
  Age: 40 Year
  Sex: Female

DRUGS (1)
  1. LACTIC ACID\SALICYLIC ACID [Suspect]
     Active Substance: LACTIC ACID\SALICYLIC ACID

REACTIONS (2)
  - Application site pain [None]
  - Application site pain [None]

NARRATIVE: CASE EVENT DATE: 20221219
